FAERS Safety Report 6339069-6 (Version None)
Quarter: 2009Q3

REPORT INFORMATION
  Report Type: 
  Country: None (occurrence: None)
  Receive Date: 20090903
  Receipt Date: 20090828
  Transmission Date: 20100115
  Serious: Yes (Other)
  Sender: FDA-Public Use
  Company Number: US-BAYER-200930674GPV

PATIENT

DRUGS (3)
  1. SORAFENIB [Suspect]
     Indication: GLIOBLASTOMA
     Dosage: TOTAL DAILY DOSE: 400 MG
  2. SORAFENIB [Suspect]
     Dosage: TOTAL DAILY DOSE: 800 MG
  3. TEMSIROLIMUS [Suspect]
     Indication: GLIOBLASTOMA
     Route: 042

REACTIONS (7)
  - CEREBRAL ISCHAEMIA [None]
  - DIARRHOEA [None]
  - FATIGUE [None]
  - HYPERLIPIDAEMIA [None]
  - HYPOPHOSPHATAEMIA [None]
  - THROMBOCYTOPENIA [None]
  - TRANSAMINASES INCREASED [None]
